APPROVED DRUG PRODUCT: CALCIMAR
Active Ingredient: CALCITONIN SALMON
Strength: 400 IU/VIAL
Dosage Form/Route: INJECTABLE;INJECTION
Application: N017497 | Product #001
Applicant: SANOFI AVENTIS US LLC
Approved: Approved Prior to Jan 1, 1982 | RLD: No | RS: No | Type: DISCN